FAERS Safety Report 5118007-8 (Version None)
Quarter: 2006Q3

REPORT INFORMATION
  Report Type: 
  Country: None (occurrence: None)
  Receive Date: 20060928
  Receipt Date: 20060928
  Transmission Date: 20061208
  Serious: Yes (Other)
  Sender: FDA-Public Use
  Company Number: None

PATIENT
  Age: 44 Year
  Sex: Female
  Weight: 74.8435 kg

DRUGS (1)
  1. ZOLOFT [Suspect]
     Indication: DEPRESSION
     Dosage: 25MG INCREASING TO 50MG ONCE A DAY PO
     Route: 048
     Dates: start: 20031010, end: 20031129

REACTIONS (3)
  - FEAR [None]
  - HALLUCINATION [None]
  - SCREAMING [None]
